FAERS Safety Report 9601259 (Version 1)
Quarter: 2013Q4

REPORT INFORMATION
  Report Type: Spontaneous
  Country: US (occurrence: US)
  Receive Date: 20131006
  Receipt Date: 20131006
  Transmission Date: 20140711
  Serious: No
  Sender: FDA-Public Use
  Company Number: US-009507513-1309USA008847

PATIENT
  Sex: Female

DRUGS (1)
  1. NEXPLANON [Suspect]
     Dosage: 1 DF, FREQUENCY UNKNOWN
     Route: 059
     Dates: start: 201209

REACTIONS (1)
  - Haemorrhage [Not Recovered/Not Resolved]
